FAERS Safety Report 7372610-3 (Version None)
Quarter: 2011Q1

REPORT INFORMATION
  Report Type: 
  Country: None (occurrence: None)
  Receive Date: 20110315
  Receipt Date: 20110228
  Transmission Date: 20110831
  Serious: Yes (Death, Life-Threatening, Hospitalization)
  Sender: FDA-Public Use
  Company Number: 011300

PATIENT
  Age: 80 Year
  Sex: Female
  Weight: 97 kg

DRUGS (13)
  1. METAMIZOLE (METAMIZOLE) [Concomitant]
  2. CANDESARTAN CILEXETIL [Concomitant]
  3. TRAMADOL HYDROCHLORIDE [Concomitant]
  4. OPIPRAMOL (OPIPRAMOL) [Concomitant]
  5. AMITRIPTYLINE HYDROCHLORIDE [Concomitant]
  6. DIMETINDENE MALEATE (DIMETINDENE MALEATE) [Concomitant]
  7. ACETYLSALICYLIC ACID (ACETYLSALICYLIC ACID) [Concomitant]
  8. PLETAL [Suspect]
     Indication: PERIPHERAL ARTERIAL OCCLUSIVE DISEASE
     Dosage: 100 MG, DAILY DOSE, ORAL
     Route: 048
     Dates: start: 20010924, end: 20100930
  9. LEVOTHYROXINE (LEVOTHYROXINE) [Concomitant]
  10. OMEPRAZOLE [Concomitant]
  11. TORSEMIDE [Concomitant]
  12. MAGNESIUM (MAGNESIUM) [Concomitant]
  13. AMLODIPINE [Concomitant]

REACTIONS (5)
  - RENAL FAILURE [None]
  - CONDITION AGGRAVATED [None]
  - GASTRIC ULCER [None]
  - ANAEMIA [None]
  - RESTLESSNESS [None]
